FAERS Safety Report 15979105 (Version 1)
Quarter: 2019Q1

REPORT INFORMATION
  Report Type: Spontaneous
  Country: US (occurrence: US)
  Receive Date: 20190219
  Receipt Date: 20190219
  Transmission Date: 20190418
  Serious: No
  Sender: FDA-Public Use
  Company Number: US-BAUSCH-BL-2019-003708

PATIENT
  Sex: Female

DRUGS (4)
  1. LUMIFY [Suspect]
     Active Substance: BRIMONIDINE TARTRATE
     Indication: PRODUCT USE IN UNAPPROVED INDICATION
  2. ADVANCED EYE RELIEF DRY EYE REJUVENATION [Suspect]
     Active Substance: GLYCERIN\PROPYLENE GLYCOL
     Indication: PRODUCT USE IN UNAPPROVED INDICATION
  3. LUMIFY [Suspect]
     Active Substance: BRIMONIDINE TARTRATE
     Indication: OCULAR ICTERUS
     Route: 065
  4. ADVANCED EYE RELIEF DRY EYE REJUVENATION [Suspect]
     Active Substance: GLYCERIN\PROPYLENE GLYCOL
     Indication: OCULAR ICTERUS
     Route: 065

REACTIONS (3)
  - Lacrimation increased [Unknown]
  - Product use in unapproved indication [Unknown]
  - Eyelid margin crusting [Unknown]

NARRATIVE: CASE EVENT DATE: 20190201
